FAERS Safety Report 23514506 (Version 1)
Quarter: 2024Q1

REPORT INFORMATION
  Report Type: Spontaneous
  Country: US (occurrence: US)
  Receive Date: 20240212
  Receipt Date: 20240212
  Transmission Date: 20240409
  Serious: Yes (Hospitalization, Other)
  Sender: FDA-Public Use
  Company Number: US-MYLANLABS-2024M1012235

PATIENT
  Age: 66 Year
  Sex: Female

DRUGS (1)
  1. GABAPENTIN [Suspect]
     Active Substance: GABAPENTIN
     Indication: Product used for unknown indication
     Dosage: UNK
     Route: 065

REACTIONS (8)
  - Guillain-Barre syndrome [Unknown]
  - Demyelinating polyneuropathy [Unknown]
  - Paraesthesia [Unknown]
  - Paraesthesia oral [Unknown]
  - Back pain [Unknown]
  - Pain in extremity [Unknown]
  - Inflammation [Unknown]
  - Lumbar puncture abnormal [Unknown]

NARRATIVE: CASE EVENT DATE: 20230320
